FAERS Safety Report 7956093-8 (Version None)
Quarter: 2011Q4

REPORT INFORMATION
  Report Type: 
  Country: None (occurrence: None)
  Receive Date: 20111205
  Receipt Date: 20111122
  Transmission Date: 20120403
  Serious: Yes (Other)
  Sender: FDA-Public Use
  Company Number: US-JNJFOC-20111110005

PATIENT
  Sex: Female
  Weight: 66.68 kg

DRUGS (7)
  1. CALCIUM [Concomitant]
     Route: 065
  2. RANITIDINE [Concomitant]
     Route: 065
  3. CLONAZEPAM [Concomitant]
     Route: 065
  4. REMICADE [Suspect]
     Indication: COLITIS ULCERATIVE
     Route: 042
     Dates: start: 20110803
  5. VITAMIN D [Concomitant]
     Route: 065
  6. ASACOL [Concomitant]
     Dosage: 3 BID
     Route: 065
  7. ALIGN PROBIOTIC [Concomitant]
     Indication: PROBIOTIC THERAPY
     Route: 065

REACTIONS (4)
  - HYPOAESTHESIA [None]
  - ALOPECIA [None]
  - ACNE CYSTIC [None]
  - DYSPNOEA [None]
